FAERS Safety Report 7335169-2 (Version None)
Quarter: 2011Q1

REPORT INFORMATION
  Report Type: 
  Country: None (occurrence: None)
  Receive Date: 20110302
  Receipt Date: 20110302
  Transmission Date: 20110831
  Serious: Yes (Disabling)
  Sender: FDA-Public Use
  Company Number: None

PATIENT
  Sex: Female
  Weight: 65.7716 kg

DRUGS (1)
  1. METOCLOPRAMIDE [Suspect]
     Indication: GASTROOESOPHAGEAL REFLUX DISEASE
     Dosage: 10 MG 3/DAY ORAL
     Route: 048
     Dates: start: 20071024

REACTIONS (12)
  - SPEECH DISORDER [None]
  - TREMOR [None]
  - FEELING HOT [None]
  - LIP DRY [None]
  - DYSKINESIA [None]
  - GLOSSODYNIA [None]
  - PARAESTHESIA ORAL [None]
  - WEIGHT INCREASED [None]
  - ORAL DISORDER [None]
  - GRIMACING [None]
  - DRY MOUTH [None]
  - INITIAL INSOMNIA [None]
